FAERS Safety Report 5325382-8 (Version None)
Quarter: 2007Q2

REPORT INFORMATION
  Report Type: 
  Country: None (occurrence: None)
  Receive Date: 20070515
  Receipt Date: 20070503
  Transmission Date: 20071010
  Serious: Yes (Other)
  Sender: FDA-Public Use
  Company Number: TR-AMGEN-UK223709

PATIENT
  Age: 6 Year

DRUGS (2)
  1. NEUPOGEN [Suspect]
     Indication: PERIPHERAL BLOOD STEM CELL APHERESIS
     Route: 058
  2. PARACETAMOL [Suspect]
     Route: 065

REACTIONS (4)
  - BONE PAIN [None]
  - MYALGIA [None]
  - RHABDOMYOLYSIS [None]
  - VOMITING [None]
